FAERS Safety Report 17637191 (Version 1)
Quarter: 2020Q2

REPORT INFORMATION
  Report Type: Spontaneous
  Country: US (occurrence: US)
  Receive Date: 20200406
  Receipt Date: 20200406
  Transmission Date: 20200713
  Serious: Yes (Hospitalization)
  Sender: FDA-Public Use
  Company Number: None

PATIENT
  Sex: Female

DRUGS (7)
  1. METOPROLOL TARTRATE. [Concomitant]
     Active Substance: METOPROLOL TARTRATE
  2. ALLOPURINOL. [Concomitant]
     Active Substance: ALLOPURINOL
  3. LOSARTAN. [Concomitant]
     Active Substance: LOSARTAN
  4. ONDANSETRON [Concomitant]
     Active Substance: ONDANSETRON
  5. IBRANCE [Suspect]
     Active Substance: PALBOCICLIB
     Indication: NEOPLASM MALIGNANT
     Dosage: FREQUENCY:QD DAYS 1-21, 7OFF;?
     Route: 048
     Dates: start: 20190416
  6. ENOXAPARIN [Concomitant]
     Active Substance: ENOXAPARIN
  7. WARFARIN [Concomitant]
     Active Substance: WARFARIN

REACTIONS (3)
  - Infection [None]
  - Therapy interrupted [None]
  - Influenza [None]
